FAERS Safety Report 19735675 (Version 2)
Quarter: 2021Q3

REPORT INFORMATION
  Report Type: Spontaneous
  Country: US (occurrence: US)
  Receive Date: 20210823
  Receipt Date: 20210907
  Transmission Date: 20211014
  Serious: Yes (Death, Hospitalization)
  Sender: FDA-Public Use
  Company Number: US-PFIZER INC-202101035267

PATIENT
  Age: 88 Year
  Sex: Male

DRUGS (2)
  1. VYNDAMAX [Suspect]
     Active Substance: TAFAMIDIS
     Dosage: 61 MG
     Dates: start: 20200924, end: 20210814
  2. VYNDAMAX [Suspect]
     Active Substance: TAFAMIDIS
     Dosage: 61 MG
     Route: 048
     Dates: start: 20200925

REACTIONS (2)
  - Death [Fatal]
  - Cellulitis [Recovering/Resolving]

NARRATIVE: CASE EVENT DATE: 2021
